FAERS Safety Report 11914255 (Version 1)
Quarter: 2016Q1

REPORT INFORMATION
  Report Type: Spontaneous
  Country: US (occurrence: US)
  Receive Date: 20160113
  Receipt Date: 20160113
  Transmission Date: 20160526
  Serious: Yes (Hospitalization)
  Sender: FDA-Public Use
  Company Number: US-SA-2015SA174690

PATIENT
  Age: 70 Year
  Sex: Male

DRUGS (18)
  1. LASIX [Suspect]
     Active Substance: FUROSEMIDE
     Indication: OEDEMA
     Dosage: DOSE: 1 -2 TABLET AS DIRECTED
     Route: 048
  2. ALBUTEROL SULFATE W/IPRATROPIUM BROMIDE [Concomitant]
     Active Substance: ALBUTEROL SULFATE\IPRATROPIUM BROMIDE
     Dosage: 0.5- 3 (2.5) MG AMPUL NEB 3MI
     Dates: start: 20150901
  3. LASIX [Suspect]
     Active Substance: FUROSEMIDE
     Indication: OEDEMA
     Route: 048
     Dates: start: 201510
  4. JANUVIA [Concomitant]
     Active Substance: SITAGLIPTIN PHOSPHATE
     Dates: start: 20130812
  5. ALBUTEROL SULFATE. [Concomitant]
     Active Substance: ALBUTEROL SULFATE
     Dosage: 1 PUFF
     Dates: start: 20150901
  6. OMEGA 3 [Concomitant]
     Active Substance: OMEGA-3 FATTY ACIDS
     Dosage: SOFT GEL CAPSULE 1EACH
     Route: 048
     Dates: start: 20150901
  7. PREDNISONE. [Concomitant]
     Active Substance: PREDNISONE
     Dates: end: 20150908
  8. LASIX [Suspect]
     Active Substance: FUROSEMIDE
     Indication: OEDEMA
     Route: 048
  9. ADVIL [Concomitant]
     Active Substance: IBUPROFEN
     Indication: ARTHRALGIA
     Dosage: STRENGTH: 200 MG
     Dates: start: 20150817, end: 20150831
  10. AZELASTINE HYDROCHLORIDE. [Concomitant]
     Active Substance: AZELASTINE HYDROCHLORIDE
     Dosage: 137 MCG/0.137 ML SPRAY.PUMP1  SPRAY NS HS
     Dates: start: 20150901
  11. OMEPRAZOLE. [Concomitant]
     Active Substance: OMEPRAZOLE
     Route: 048
     Dates: start: 20130705
  12. MELATONIN/PYRIDOXINE HYDROCHLORIDE [Concomitant]
     Dosage: 2 X 5 MG TABLETS
     Route: 048
     Dates: start: 20150901
  13. VITAMIN C [Concomitant]
     Active Substance: ASCORBIC ACID
     Route: 048
     Dates: start: 20150901
  14. NIACIN. [Concomitant]
     Active Substance: NIACIN
     Route: 048
     Dates: start: 20150901
  15. METOLAZONE. [Concomitant]
     Active Substance: METOLAZONE
     Route: 048
     Dates: end: 20150908
  16. PRADAXA [Concomitant]
     Active Substance: DABIGATRAN ETEXILATE MESYLATE
     Route: 048
  17. CARVEDILOL. [Concomitant]
     Active Substance: CARVEDILOL
     Route: 048
     Dates: start: 20150901, end: 20150908
  18. MEDROL [Concomitant]
     Active Substance: METHYLPREDNISOLONE
     Dosage: FIRST DOSE (6 TABLETS)
     Dates: start: 20150831

REACTIONS (4)
  - Renal impairment [Recovering/Resolving]
  - Peripheral swelling [Recovering/Resolving]
  - Drug ineffective [Unknown]
  - Peripheral swelling [Recovering/Resolving]

NARRATIVE: CASE EVENT DATE: 20150821
